FAERS Safety Report 17545149 (Version 4)
Quarter: 2020Q2

REPORT INFORMATION
  Report Type: Spontaneous
  Country: US (occurrence: US)
  Receive Date: 20200316
  Receipt Date: 20200526
  Transmission Date: 20200713
  Serious: Yes (Hospitalization, Other)
  Sender: FDA-Public Use
  Company Number: US-AMGEN-USASP2020041775

PATIENT
  Age: 71 Year
  Sex: Female
  Weight: 52.61 kg

DRUGS (1)
  1. PROLIA [Suspect]
     Active Substance: DENOSUMAB
     Indication: OSTEOPOROSIS POSTMENOPAUSAL
     Dosage: 60 MILLIGRAM
     Route: 065
     Dates: start: 2019

REACTIONS (3)
  - Intestinal obstruction [Unknown]
  - Product storage error [Unknown]
  - Wound infection [Unknown]

NARRATIVE: CASE EVENT DATE: 201909
